FAERS Safety Report 6061944-0 (Version None)
Quarter: 2009Q1

REPORT INFORMATION
  Report Type: 
  Country: None (occurrence: None)
  Receive Date: 20090202
  Receipt Date: 20090127
  Transmission Date: 20090719
  Serious: Yes (Other)
  Sender: FDA-Public Use
  Company Number: PHHY2008DE33478

PATIENT
  Sex: Female

DRUGS (5)
  1. RASILEZ [Suspect]
     Indication: HYPERTENSION
     Dosage: UNK
     Dates: start: 20081110, end: 20081121
  2. BELOC ZOK [Concomitant]
     Indication: HYPERTENSION
     Dosage: 0.5 PER DAY
  3. EUTHYROX [Concomitant]
  4. PANTOZOL [Concomitant]
  5. TEBONIN [Concomitant]

REACTIONS (17)
  - ANXIETY [None]
  - APPENDICECTOMY [None]
  - APPENDICITIS [None]
  - ASTHENIA [None]
  - BLOOD PRESSURE FLUCTUATION [None]
  - BLOOD PRESSURE INCREASED [None]
  - DEHYDRATION [None]
  - DYSPNOEA [None]
  - ERYTHEMA [None]
  - EXTRASYSTOLES [None]
  - EYE SWELLING [None]
  - FEELING ABNORMAL [None]
  - FLUID RETENTION [None]
  - HEART RATE IRREGULAR [None]
  - RESTLESSNESS [None]
  - SENSATION OF HEAVINESS [None]
  - TACHYCARDIA [None]
